FAERS Safety Report 5088923-4 (Version None)
Quarter: 2006Q3

REPORT INFORMATION
  Report Type: 
  Country: None (occurrence: None)
  Receive Date: 20060824
  Receipt Date: 20060824
  Transmission Date: 20061208
  Serious: Yes (Life-Threatening, Hospitalization, Other)
  Sender: FDA-Public Use
  Company Number: None

PATIENT
  Age: 52 Year
  Sex: Female
  Weight: 52.1637 kg

DRUGS (1)
  1. NULYTELY [Suspect]
     Indication: COLONOSCOPY
     Dosage: STANDARD 1G CONTAINER MIX H20  1 GLASS EVERY 10MI  PO
     Route: 048
     Dates: start: 20060803, end: 20060804

REACTIONS (8)
  - BLOOD SODIUM DECREASED [None]
  - COMA [None]
  - CONVULSION [None]
  - FATIGUE [None]
  - HYPOTENSION [None]
  - LOSS OF CONSCIOUSNESS [None]
  - MEMORY IMPAIRMENT [None]
  - TREMOR [None]
